FAERS Safety Report 24957759 (Version 1)
Quarter: 2025Q1

REPORT INFORMATION
  Report Type: Spontaneous
  Country: US (occurrence: US)
  Receive Date: 20250212
  Receipt Date: 20250212
  Transmission Date: 20250409
  Serious: No
  Sender: Haleon PLC
  Company Number: US-HALEON-2226947

PATIENT
  Age: 34 Year
  Sex: Female

DRUGS (3)
  1. SENSODYNE EXTRA WHITENING [Suspect]
     Active Substance: POTASSIUM NITRATE\SODIUM FLUORIDE
     Indication: Hyperaesthesia teeth
  2. SENSODYNE REPAIR AND PROTECT WHITENING [Suspect]
     Active Substance: STANNOUS FLUORIDE
     Indication: Hyperaesthesia teeth
  3. SENSODYNE PRONAMEL GENTLE WHITENING [Suspect]
     Active Substance: POTASSIUM NITRATE\SODIUM FLUORIDE
     Indication: Hyperaesthesia teeth

REACTIONS (1)
  - Drug ineffective [Not Recovered/Not Resolved]
